FAERS Safety Report 4809767-1 (Version None)
Quarter: 2005Q4

REPORT INFORMATION
  Report Type: 
  Country: None (occurrence: None)
  Receive Date: 20051024
  Receipt Date: 20051010
  Transmission Date: 20060501
  Serious: Yes (Hospitalization, Other)
  Sender: FDA-Public Use
  Company Number: 2005131385

PATIENT
  Age: 50 Year
  Sex: Female
  Weight: 72.5755 kg

DRUGS (6)
  1. ZYRTEC [Suspect]
     Indication: ASTHMA
     Dosage: (1 IN 1 D)
  2. ZYRTEC [Suspect]
     Indication: MULTIPLE ALLERGIES
     Dosage: (1 IN 1 D)
  3. FLONASE [Concomitant]
  4. SINGULAIR [Concomitant]
  5. ADVAIR DISKUS 100/50 [Concomitant]
  6. GUAIFED (GUAIFENESIN, PSEUDOEPHEDRINE HYDROCHLORIDE) [Concomitant]

REACTIONS (3)
  - DRUG DEPENDENCE [None]
  - PRURITUS [None]
  - URTICARIA [None]
